FAERS Safety Report 7728337-9 (Version None)
Quarter: 2011Q3

REPORT INFORMATION
  Report Type: 
  Country: None (occurrence: None)
  Receive Date: 20110905
  Receipt Date: 20110831
  Transmission Date: 20111222
  Serious: Yes (Other)
  Sender: FDA-Public Use
  Company Number: PHEH2009US11009

PATIENT
  Sex: Female

DRUGS (2)
  1. ZOMETA [Suspect]
     Dosage: UNK
  2. FOSAMAX [Suspect]

REACTIONS (12)
  - OSTEONECROSIS OF JAW [None]
  - EXPOSED BONE IN JAW [None]
  - DISABILITY [None]
  - DEFORMITY [None]
  - INJURY [None]
  - ANHEDONIA [None]
  - EMOTIONAL DISTRESS [None]
  - OVERDOSE [None]
  - BONE NEOPLASM MALIGNANT [None]
  - INFECTION [None]
  - PAIN [None]
  - ANXIETY [None]
